FAERS Safety Report 17620025 (Version 2)
Quarter: 2020Q4

REPORT INFORMATION
  Report Type: Spontaneous
  Country: ES (occurrence: ES)
  Receive Date: 20200402
  Receipt Date: 20201031
  Transmission Date: 20210113
  Serious: Yes (Other)
  Sender: FDA-Public Use
  Company Number: ES-AUROBINDO-AUR-APL-2020-016292

PATIENT
  Sex: Male

DRUGS (17)
  1. FLUOROURACIL. [Concomitant]
     Active Substance: FLUOROURACIL
     Indication: ADENOCARCINOMA OF COLON
  2. RANITIDINE. [Concomitant]
     Active Substance: RANITIDINE
     Indication: PRODUCT USED FOR UNKNOWN INDICATION
     Dosage: 300 MILLIGRAM, ON THE DAY OF ADMINISTRATION
     Route: 065
     Dates: start: 2018
  3. OXALIPLATIN. [Suspect]
     Active Substance: OXALIPLATIN
     Indication: ADENOCARCINOMA OF COLON
  4. FLUOROURACIL. [Concomitant]
     Active Substance: FLUOROURACIL
     Indication: ADENOCARCINOMA OF COLON
  5. DEXCHLORPHENIRAMINE [Concomitant]
     Active Substance: DEXCHLORPHENIRAMINE
     Indication: PRODUCT USED FOR UNKNOWN INDICATION
     Dosage: 5 MILLIGRAM
     Route: 042
     Dates: start: 2018
  6. PARACETAMOL [Concomitant]
     Active Substance: ACETAMINOPHEN
     Indication: PRODUCT USED FOR UNKNOWN INDICATION
     Dosage: 1 GRAM
     Route: 048
     Dates: start: 2018
  7. OXALIPLATIN. [Suspect]
     Active Substance: OXALIPLATIN
     Indication: ADENOCARCINOMA OF COLON
     Dosage: UNK UNK, CYCLICAL
     Route: 065
  8. FOLINIC ACID [Concomitant]
     Active Substance: LEUCOVORIN
     Indication: DISEASE PROGRESSION
  9. MONTELUKAST [Concomitant]
     Active Substance: MONTELUKAST SODIUM
     Indication: PRODUCT USED FOR UNKNOWN INDICATION
     Dosage: ON THE DAY OF ADMINISTRATION
     Route: 065
     Dates: start: 2018
  10. OXALIPLATIN. [Suspect]
     Active Substance: OXALIPLATIN
     Indication: DISEASE PROGRESSION
  11. BEVACIZUMAB. [Concomitant]
     Active Substance: BEVACIZUMAB
     Indication: ADENOCARCINOMA OF COLON
  12. FOLINIC ACID [Concomitant]
     Active Substance: LEUCOVORIN
     Indication: ADENOCARCINOMA OF COLON
  13. FOLINIC ACID [Concomitant]
     Active Substance: LEUCOVORIN
     Indication: ADENOCARCINOMA OF COLON
     Dosage: UNK UNK, CYCLICAL
     Route: 065
     Dates: start: 2018
  14. FLUOROURACIL. [Concomitant]
     Active Substance: FLUOROURACIL
     Indication: DISEASE PROGRESSION
     Dosage: UNK UNK, CYCLICAL
     Route: 065
     Dates: start: 2018
  15. BEVACIZUMAB. [Concomitant]
     Active Substance: BEVACIZUMAB
     Indication: DISEASE PROGRESSION
     Dosage: UNK UNK, CYCLICAL
     Route: 065
     Dates: start: 2018
  16. BEVACIZUMAB. [Concomitant]
     Active Substance: BEVACIZUMAB
     Indication: ADENOCARCINOMA OF COLON
  17. DEXAMETHASONE. [Concomitant]
     Active Substance: DEXAMETHASONE
     Indication: PRODUCT USED FOR UNKNOWN INDICATION
     Dosage: 20 MILLIGRAM
     Route: 042
     Dates: start: 2018

REACTIONS (6)
  - Dyspnoea [Unknown]
  - Erythema [Unknown]
  - Wheezing [Unknown]
  - Hypotension [Unknown]
  - Tachycardia [Unknown]
  - Oxygen saturation decreased [Unknown]
